FAERS Safety Report 7125279-7 (Version None)
Quarter: 2010Q4

REPORT INFORMATION
  Report Type: 
  Country: None (occurrence: None)
  Receive Date: 20101112
  Receipt Date: 20101102
  Transmission Date: 20110411
  Serious: Yes (Other)
  Sender: FDA-Public Use
  Company Number: 10-468

PATIENT
  Age: 27 Year
  Sex: Male

DRUGS (6)
  1. IBUPROFEN [Suspect]
     Dates: start: 20020820
  2. ASPIRIN [Suspect]
  3. COCAINE [Concomitant]
  4. FLUOXETINE [Concomitant]
  5. LITHIUM [Concomitant]
  6. METHYLENDIOXYMETHAMPHETAMINE [Concomitant]

REACTIONS (7)
  - DEPRESSION [None]
  - LOSS OF EMPLOYMENT [None]
  - MULTIPLE DRUG OVERDOSE INTENTIONAL [None]
  - PARTNER STRESS [None]
  - SEXUAL DYSFUNCTION [None]
  - SOCIAL PHOBIA [None]
  - SUICIDE ATTEMPT [None]
